FAERS Safety Report 20829271 (Version 1)
Quarter: 2022Q2

REPORT INFORMATION
  Report Type: Spontaneous
  Country: US (occurrence: US)
  Receive Date: 20220513
  Receipt Date: 20220513
  Transmission Date: 20220721
  Serious: No
  Sender: FDA-Public Use
  Company Number: US-SA-SAC20220511000971

PATIENT
  Age: 40 Year
  Sex: Male
  Weight: 94.3 kg

DRUGS (14)
  1. LANTUS [Suspect]
     Active Substance: INSULIN GLARGINE
     Indication: Cushing^s syndrome
     Route: 048
     Dates: start: 201808
  2. KORLYM [Suspect]
     Active Substance: MIFEPRISTONE
     Indication: Cushing^s syndrome
     Dosage: 1200 MG, QD
  3. KORLYM [Suspect]
     Active Substance: MIFEPRISTONE
  4. ASPIRIN [Concomitant]
     Active Substance: ASPIRIN
  5. CLOZAPINE [Concomitant]
     Active Substance: CLOZAPINE
  6. DOCUSATE [Concomitant]
     Active Substance: DOCUSATE
  7. FENOFIBRATE [Concomitant]
     Active Substance: FENOFIBRATE
  8. INVOKAMET [Concomitant]
     Active Substance: CANAGLIFLOZIN\METFORMIN HYDROCHLORIDE
  9. TRULICITY [Concomitant]
     Active Substance: DULAGLUTIDE
  10. PRAVASTATIN [Concomitant]
     Active Substance: PRAVASTATIN
  11. METOPROLOL [Concomitant]
     Active Substance: METOPROLOL
  12. LISINOPRIL [Concomitant]
     Active Substance: LISINOPRIL
  13. DIVALPROEX SODIUM [Concomitant]
     Active Substance: DIVALPROEX SODIUM
  14. OMEGA 100 [Concomitant]

REACTIONS (2)
  - Blood glucose decreased [Unknown]
  - Product use in unapproved indication [Unknown]

NARRATIVE: CASE EVENT DATE: 20220401
